FAERS Safety Report 6686658-5 (Version None)
Quarter: 2010Q2

REPORT INFORMATION
  Report Type: 
  Country: None (occurrence: None)
  Receive Date: 20100416
  Receipt Date: 20100416
  Transmission Date: 20101027
  Serious: Yes (Other)
  Sender: FDA-Public Use
  Company Number: None

PATIENT
  Sex: Male
  Weight: 77.7919 kg

DRUGS (1)
  1. HYZAAR [Suspect]
     Dosage: 100/25 MG X 1 ONCE PO
     Route: 048
     Dates: start: 20090221

REACTIONS (1)
  - CONVULSION [None]
